FAERS Safety Report 11644204 (Version 1)
Quarter: 2015Q4

REPORT INFORMATION
  Report Type: Spontaneous
  Country: US (occurrence: None)
  Receive Date: 20151019
  Receipt Date: 20151019
  Transmission Date: 20160304
  Serious: Yes (Hospitalization, Disabling, Other)
  Sender: FDA-Public Use
  Company Number: None

PATIENT
  Age: 37 Year
  Sex: Female
  Weight: 90.72 kg

DRUGS (8)
  1. OXYCODONE [Concomitant]
     Active Substance: OXYCODONE
  2. C [Concomitant]
  3. KLONAZAPAM [Concomitant]
  4. E [Concomitant]
  5. VITAMIN B COMPLEX [Concomitant]
     Active Substance: CYANOCOBALAMIN\DEXPANTHENOL\NIACINAMIDE\PYRIDOXINE HYDROCHLORIDE\RIBOFLAVIN 5^-PHOSPHATE SODIUM\THIAMINE HYDROCHLORIDE\VITAMIN B COMPLEX
  6. MAGNESIUM [Concomitant]
     Active Substance: MAGNESIUM
  7. CIPROFLOXACIN 250 MG AMERICAN HEALTH PACKAGING [Suspect]
     Active Substance: CIPROFLOXACIN
     Indication: SINUSITIS
     Route: 048
     Dates: start: 20141019, end: 20141021
  8. MULTI MINERAL SUPPLEMENT [Concomitant]

REACTIONS (13)
  - Abasia [None]
  - Impaired work ability [None]
  - Tendon disorder [None]
  - Toxicity to various agents [None]
  - Wheelchair user [None]
  - Myalgia [None]
  - Muscular weakness [None]
  - Arthralgia [None]
  - Dysstasia [None]
  - Movement disorder [None]
  - Walking aid user [None]
  - Bone density decreased [None]
  - Arthropathy [None]

NARRATIVE: CASE EVENT DATE: 20141018
